FAERS Safety Report 11929039 (Version 1)
Quarter: 2016Q1

REPORT INFORMATION
  Report Type: Spontaneous
  Country: US (occurrence: US)
  Receive Date: 20160120
  Receipt Date: 20160120
  Transmission Date: 20160526
  Serious: No
  Sender: FDA-Public Use
  Company Number: US-TEVA-595844USA

PATIENT
  Age: 47 Year
  Sex: Male

DRUGS (1)
  1. METOPROLOL. [Suspect]
     Active Substance: METOPROLOL
     Indication: HYPERTENSION
     Dates: start: 20150917, end: 20150918

REACTIONS (7)
  - Drug ineffective [Unknown]
  - Blood pressure abnormal [Unknown]
  - Eye pain [Unknown]
  - Adverse event [Unknown]
  - Drug hypersensitivity [Unknown]
  - Product substitution issue [Unknown]
  - Product packaging quantity issue [Unknown]

NARRATIVE: CASE EVENT DATE: 20150917
